FAERS Safety Report 11111074 (Version 1)
Quarter: 2015Q2

REPORT INFORMATION
  Report Type: Spontaneous
  Country: US (occurrence: US)
  Receive Date: 20150513
  Receipt Date: 20150513
  Transmission Date: 20150821
  Serious: Yes (Congenital Anomaly, Other)
  Sender: FDA-Public Use
  Company Number: US-ABBVIE-15P-163-1387006-00

PATIENT
  Sex: Male

DRUGS (1)
  1. DEPAKOTE [Suspect]
     Active Substance: DIVALPROEX SODIUM
     Indication: MATERNAL EXPOSURE TIMING UNSPECIFIED
     Route: 064

REACTIONS (20)
  - Nervous system disorder [Unknown]
  - Attention deficit/hyperactivity disorder [Unknown]
  - Cognitive disorder [Unknown]
  - Injury [Unknown]
  - Mental disorder [Unknown]
  - Motor developmental delay [Unknown]
  - Developmental delay [Unknown]
  - Emotional distress [Unknown]
  - Anhedonia [Unknown]
  - Dysmorphism [Unknown]
  - Congenital anomaly [Unknown]
  - Autism [Unknown]
  - Congenital nose malformation [Unknown]
  - Language disorder [Unknown]
  - Pain [Unknown]
  - Economic problem [Unknown]
  - Abnormal behaviour [Not Recovered/Not Resolved]
  - Cognitive disorder [Not Recovered/Not Resolved]
  - Abnormal behaviour [Unknown]
  - Congenital oral malformation [Unknown]

NARRATIVE: CASE EVENT DATE: 200609
